FAERS Safety Report 4570185-5 (Version None)
Quarter: 2005Q1

REPORT INFORMATION
  Report Type: 
  Country: None (occurrence: None)
  Receive Date: 20050126
  Receipt Date: 20050126
  Transmission Date: 20050727
  Serious: Yes (Hospitalization)
  Sender: FDA-Public Use
  Company Number: None

PATIENT
  Age: 75 Year
  Sex: Male
  Weight: 117.028 kg

DRUGS (5)
  1. DIGOXIN [Suspect]
     Indication: ATRIAL FIBRILLATION
     Dosage: 0.25 MG DAILY
     Dates: start: 20040301, end: 20041218
  2. DIGOXIN [Suspect]
     Indication: CARDIAC FAILURE CONGESTIVE
     Dosage: 0.25 MG DAILY
     Dates: start: 20040301, end: 20041218
  3. METOPROLOL [Suspect]
     Indication: ATRIAL FIBRILLATION
     Dosage: 25 MG BID
     Dates: start: 20031001, end: 20041218
  4. METOPROLOL [Suspect]
     Indication: CORONARY ARTERY DISEASE
     Dosage: 25 MG BID
     Dates: start: 20031001, end: 20041218
  5. MORPHINE SA 30MG Q 12H FOR PAIN [Suspect]
     Dates: start: 20021201

REACTIONS (2)
  - BRADYCARDIA [None]
  - MENTAL STATUS CHANGES [None]
